FAERS Safety Report 8736130 (Version 2)
Quarter: 2013Q1

REPORT INFORMATION
  Report Type: Spontaneous
  Country: GB (occurrence: None)
  Receive Date: 20120803
  Receipt Date: 20121018
  Transmission Date: 20140127
  Serious: Yes (Hospitalization, Other)
  Sender: FDA-Public Use
  Company Number: GER/UKI/12/0025206

PATIENT
  Age: 21 Year
  Sex: Female
  Weight: 100 kg

DRUGS (3)
  1. LAMOTRIGINE (LAMOTRIGINE) [Suspect]
     Dosage: 300 MG, 1 IN 1 D,
     Dates: start: 201008
  2. LAMOTRIGINE [Suspect]
     Dosage: VAGINAL
     Route: 067
  3. FOLIC ACID [Concomitant]

REACTIONS (2)
  - CONVULSION [None]
  - MATERNAL EXPOSURE DURING PREGNANCY [None]
